FAERS Safety Report 15563001 (Version 2)
Quarter: 2018Q4

REPORT INFORMATION
  Report Type: Spontaneous
  Country: NL (occurrence: NL)
  Receive Date: 20181029
  Receipt Date: 20181105
  Transmission Date: 20190205
  Serious: Yes (Other)
  Sender: FDA-Public Use
  Company Number: NL-SHIRE-NL201841631

PATIENT

DRUGS (7)
  1. ANAKINRA [Suspect]
     Active Substance: ANAKINRA
     Indication: KAWASAKI^S DISEASE
     Dosage: 1 MG/KG, 1X/DAY:QD
     Route: 058
  2. KIOVIG [Suspect]
     Active Substance: HUMAN IMMUNOGLOBULIN G
     Indication: KAWASAKI^S DISEASE
     Route: 042
  3. KIOVIG [Suspect]
     Active Substance: HUMAN IMMUNOGLOBULIN G
     Dosage: 2000 MG/KG, UNK
     Route: 042
  4. PREDNISONE. [Suspect]
     Active Substance: PREDNISONE
     Indication: KAWASAKI^S DISEASE
     Route: 065
  5. ASPIRIN. [Concomitant]
     Active Substance: ASPIRIN
     Indication: CORONARY ARTERY THROMBOSIS
  6. COUMARIN [Concomitant]
     Active Substance: COUMARIN
     Indication: CORONARY ARTERY THROMBOSIS
  7. METHYLPREDNISOLONE. [Suspect]
     Active Substance: METHYLPREDNISOLONE
     Indication: KAWASAKI^S DISEASE
     Route: 065

REACTIONS (3)
  - Hypotension [Unknown]
  - Tachycardia [Unknown]
  - Drug effect incomplete [Unknown]
